FAERS Safety Report 13646898 (Version 1)
Quarter: 2017Q2

REPORT INFORMATION
  Report Type: Spontaneous
  Country: US (occurrence: US)
  Receive Date: 20170612
  Receipt Date: 20170612
  Transmission Date: 20170830
  Serious: No
  Sender: FDA-Public Use
  Company Number: None

PATIENT
  Age: 64 Year
  Sex: Male

DRUGS (1)
  1. DOFETILIDE 0.25MG MAYNE PHARMA [Suspect]
     Active Substance: DOFETILIDE
     Indication: PRODUCT USED FOR UNKNOWN INDICATION
     Route: 048
     Dates: start: 20160729, end: 20170609

REACTIONS (3)
  - Condition aggravated [None]
  - Therapeutic response changed [None]
  - Drug effect decreased [None]

NARRATIVE: CASE EVENT DATE: 20170607
